FAERS Safety Report 7113441-9 (Version None)
Quarter: 2010Q4

REPORT INFORMATION
  Report Type: 
  Country: None (occurrence: None)
  Receive Date: 20101119
  Receipt Date: 20101108
  Transmission Date: 20110411
  Serious: Yes (Other)
  Sender: FDA-Public Use
  Company Number: DE-ALLERGAN-1011109US

PATIENT
  Age: 54 Year
  Sex: Female

DRUGS (6)
  1. LUMIGAN [Suspect]
     Indication: GLAUCOMA
     Dosage: 1 GTT, QD
     Route: 047
     Dates: start: 20100813, end: 20100818
  2. LUMIGAN [Suspect]
     Indication: INTRAOCULAR PRESSURE INCREASED
  3. BISOPROLOL FUMARATE [Concomitant]
     Indication: PRODUCT USED FOR UNKNOWN INDICATION
     Dosage: 2.5 MG
     Route: 048
  4. ASPIRIN [Concomitant]
     Indication: PRODUCT USED FOR UNKNOWN INDICATION
     Dosage: 100 MG
     Route: 048
  5. SIMVASTATIN [Concomitant]
     Indication: PRODUCT USED FOR UNKNOWN INDICATION
     Dosage: 40 MG
     Route: 048
  6. MACRODYLIN [Concomitant]
     Indication: PRODUCT USED FOR UNKNOWN INDICATION
     Dosage: 25 MG
     Route: 048

REACTIONS (3)
  - HEART RATE DECREASED [None]
  - NAUSEA [None]
  - VERTIGO [None]
